FAERS Safety Report 14273981 (Version 1)
Quarter: 2017Q4

REPORT INFORMATION
  Report Type: Spontaneous
  Country: CL (occurrence: CL)
  Receive Date: 20171212
  Receipt Date: 20171212
  Transmission Date: 20180321
  Serious: Yes (Death, Other)
  Sender: FDA-Public Use
  Company Number: CL-ASTELLAS-2017US052517

PATIENT
  Age: 10 Year
  Sex: Female

DRUGS (9)
  1. PREDNISONE. [Concomitant]
     Active Substance: PREDNISONE
     Indication: GRAFT VERSUS HOST DISEASE IN SKIN
  2. TREOSULFAN [Concomitant]
     Active Substance: TREOSULFAN
     Indication: CORD BLOOD TRANSPLANT THERAPY
     Dosage: UNK UNK, UNKNOWN FREQ.
     Route: 065
  3. THIOTEPA. [Concomitant]
     Active Substance: THIOTEPA
     Indication: CORD BLOOD TRANSPLANT THERAPY
     Dosage: UNK UNK, UNKNOWN FREQ.
     Route: 065
  4. FLUDARABINE [Concomitant]
     Active Substance: FLUDARABINE PHOSPHATE
     Indication: CORD BLOOD TRANSPLANT THERAPY
     Dosage: UNK UNK, UNKNOWN FREQ.
     Route: 065
  5. CICLOSPORIN [Concomitant]
     Active Substance: CYCLOSPORINE
     Indication: PROPHYLAXIS AGAINST GRAFT VERSUS HOST DISEASE
     Dosage: UNK UNK, UNKNOWN FREQ.
     Route: 065
  6. TACROLIMUS. [Suspect]
     Active Substance: TACROLIMUS
     Indication: GRAFT VERSUS HOST DISEASE IN GASTROINTESTINAL TRACT
     Dosage: UNK, UNKNOWN FREQ.
     Route: 065
  7. PREDNISONE. [Concomitant]
     Active Substance: PREDNISONE
     Indication: GRAFT VERSUS HOST DISEASE IN GASTROINTESTINAL TRACT
     Dosage: UNK UNK, UNKNOWN FREQ.
     Route: 065
  8. MYCOPHENOLATE MOFETIL. [Concomitant]
     Active Substance: MYCOPHENOLATE MOFETIL
     Indication: PROPHYLAXIS AGAINST GRAFT VERSUS HOST DISEASE
     Dosage: UNK UNK, UNKNOWN FREQ.
     Route: 065
  9. TACROLIMUS. [Suspect]
     Active Substance: TACROLIMUS
     Indication: GRAFT VERSUS HOST DISEASE IN SKIN

REACTIONS (4)
  - Acute lymphocytic leukaemia recurrent [Fatal]
  - Anaphylactic reaction [Unknown]
  - Food allergy [Unknown]
  - Off label use [Unknown]
